FAERS Safety Report 10677517 (Version 3)
Quarter: 2015Q1

REPORT INFORMATION
  Report Type: Spontaneous
  Country: FR (occurrence: FR)
  Receive Date: 20141228
  Receipt Date: 20150128
  Transmission Date: 20150720
  Serious: No
  Sender: FDA-Public Use
  Company Number: PHHY2014FR166805

PATIENT
  Age: 65 Year
  Sex: Female

DRUGS (3)
  1. SOLUPRED [Concomitant]
     Active Substance: PREDNISOLONE
     Indication: PRODUCT USED FOR UNKNOWN INDICATION
     Route: 065
  2. PROBIOLOG [Concomitant]
     Indication: PRODUCT USED FOR UNKNOWN INDICATION
     Route: 065
  3. SPIRAMYCIN+METRONIDAZOLE SANDOZ [Suspect]
     Active Substance: METRONIDAZOLE\SPIRAMYCIN
     Indication: TOOTH ABSCESS
     Dosage: 3 DF, QD (ONE DOSAGE FORM IN THE MORNING, ONE DOSAGE FORM AT NOON AND ONE DOSAGE FORM IN THE EVENING
     Route: 048
     Dates: start: 20141208

REACTIONS (2)
  - Abdominal pain [Recovered/Resolved]
  - Nausea [Recovered/Resolved]

NARRATIVE: CASE EVENT DATE: 20141208
